FAERS Safety Report 10548588 (Version 1)
Quarter: 2014Q4

REPORT INFORMATION
  Report Type: Spontaneous
  Country: US (occurrence: US)
  Receive Date: 20141028
  Receipt Date: 20141028
  Transmission Date: 20150529
  Serious: No
  Sender: FDA-Public Use
  Company Number: US-BAYER-2014-157915

PATIENT
  Age: 22 Year
  Sex: Female

DRUGS (1)
  1. MIRENA [Suspect]
     Active Substance: LEVONORGESTREL
     Indication: CONTRACEPTION
     Dosage: UNK
     Route: 015
     Dates: start: 201004

REACTIONS (5)
  - Metrorrhagia [None]
  - Amenorrhoea [None]
  - Ovarian cyst [Not Recovered/Not Resolved]
  - Polymenorrhoea [None]
  - Dysmenorrhoea [None]
